FAERS Safety Report 22301818 (Version 1)
Quarter: 2023Q2

REPORT INFORMATION
  Report Type: Report from Study
  Country: US (occurrence: US)
  Receive Date: 20230510
  Receipt Date: 20230510
  Transmission Date: 20230722
  Serious: Yes (Death, Hospitalization, Other)
  Sender: FDA-Public Use
  Company Number: US-ABBVIE-4760571

PATIENT
  Age: 57 Year
  Sex: Male

DRUGS (1)
  1. VENCLEXTA [Suspect]
     Active Substance: VENETOCLAX
     Indication: Acute myeloid leukaemia
     Dosage: TAKE 2 TABLETS WITH ONE 50MG TABLET (TOTAL 70MG) BY MOUTH DAILY STARTING DAY 1 OF CHEMOTHERAPY?ST...
     Route: 048

REACTIONS (5)
  - Death [Fatal]
  - Acute myeloid leukaemia recurrent [Unknown]
  - Hospitalisation [Unknown]
  - Therapeutic product effect decreased [Unknown]
  - Transplant [Unknown]

NARRATIVE: CASE EVENT DATE: 20230101
